FAERS Safety Report 13393991 (Version 2)
Quarter: 2017Q2

REPORT INFORMATION
  Report Type: Spontaneous
  Country: US (occurrence: US)
  Receive Date: 20170331
  Receipt Date: 20170406
  Transmission Date: 20170830
  Serious: Yes (Death, Other)
  Sender: FDA-Public Use
  Company Number: US-BAUSCH-BL-2017-008039

PATIENT
  Age: 65 Year
  Sex: Female

DRUGS (1)
  1. XIFAXAN [Suspect]
     Active Substance: RIFAXIMIN
     Indication: PRODUCT USED FOR UNKNOWN INDICATION
     Route: 065

REACTIONS (4)
  - Swelling [Unknown]
  - Influenza like illness [Unknown]
  - Death [Fatal]
  - Renal disorder [Unknown]

NARRATIVE: CASE EVENT DATE: 201703
